FAERS Safety Report 25145930 (Version 2)
Quarter: 2025Q2

REPORT INFORMATION
  Report Type: Spontaneous
  Country: IE (occurrence: IE)
  Receive Date: 20250401
  Receipt Date: 20250429
  Transmission Date: 20250716
  Serious: Yes (Hospitalization)
  Sender: IPSEN BIOPHARMACEUTICALS, INC.
  Company Number: IE-IPSEN Group, Research and Development-2025-07332

PATIENT
  Age: 56 Year
  Sex: Female

DRUGS (2)
  1. DYSPORT [Suspect]
     Active Substance: ABOBOTULINUMTOXINA
     Indication: Muscle spasticity
     Route: 030
     Dates: start: 20250304, end: 20250304
  2. BOTOX [Concomitant]
     Active Substance: ONABOTULINUMTOXINA
     Route: 043
     Dates: start: 20250227, end: 20250227

REACTIONS (3)
  - Diplopia [Unknown]
  - Asthenia [Recovering/Resolving]
  - Anal incontinence [Unknown]

NARRATIVE: CASE EVENT DATE: 20250317
